FAERS Safety Report 5696116-2 (Version None)
Quarter: 2008Q2

REPORT INFORMATION
  Report Type: 
  Country: None (occurrence: None)
  Receive Date: 20080407
  Receipt Date: 20080327
  Transmission Date: 20081010
  Serious: Yes (Hospitalization)
  Sender: FDA-Public Use
  Company Number: FR-ASTRAZENECA-2008CG00475

PATIENT
  Age: 27765 Day
  Sex: Male

DRUGS (9)
  1. OMEPRAZOLE [Suspect]
     Route: 048
     Dates: end: 20080215
  2. CAPTOPRIL [Suspect]
     Route: 048
     Dates: end: 20080215
  3. CARDENSIEL [Suspect]
     Route: 048
     Dates: end: 20080215
  4. CARDENSIEL [Suspect]
     Route: 048
     Dates: start: 20080216, end: 20080224
  5. ALDACTONE [Suspect]
     Route: 048
     Dates: end: 20080215
  6. ATORVASTATIN CALCIUM [Suspect]
     Route: 048
     Dates: end: 20080215
  7. FUROSEMIDE [Concomitant]
  8. PREVISCAN [Concomitant]
  9. TRIATEC [Concomitant]
     Dates: start: 20080223

REACTIONS (1)
  - ORTHOSTATIC HYPOTENSION [None]
